FAERS Safety Report 20427966 (Version 1)
Quarter: 2022Q1

REPORT INFORMATION
  Report Type: Other
  Country: US (occurrence: US)
  Receive Date: 20220204
  Receipt Date: 20220204
  Transmission Date: 20220424
  Serious: No
  Sender: FDA-Public Use
  Company Number: US-ETHYPHARM-2022000070

PATIENT
  Age: 22 Year
  Sex: Female

DRUGS (31)
  1. BUPRENORPHINE\NALOXONE [Suspect]
     Active Substance: BUPRENORPHINE\NALOXONE
     Dosage: BUPRENORPHINE/NALOXONE 8/2 MG SL ?1; DAY 9
     Route: 060
  2. BUPRENORPHINE\NALOXONE [Suspect]
     Active Substance: BUPRENORPHINE\NALOXONE
     Dosage: BUPRENORPHINE/NALOXONE 2/0.5 MG SL ?Q2 HOURS ? 4; DAY 9
     Route: 060
  3. BUPRENORPHINE\NALOXONE [Suspect]
     Active Substance: BUPRENORPHINE\NALOXONE
     Dosage: BUPRENORPHINE/NALOXONE 4/1 MG SL Q4 HOURS ?6; DAY 10
     Route: 060
  4. BUPRENORPHINE\NALOXONE [Suspect]
     Active Substance: BUPRENORPHINE\NALOXONE
     Dosage: BUPRENORPHINE/NALOXONE 8/2 MG SL ?1; DAY 10
     Route: 060
  5. BUPRENORPHINE\NALOXONE [Suspect]
     Active Substance: BUPRENORPHINE\NALOXONE
     Dosage: BUPRENORPHINE/NALOXONE 8/2 MG SL?Q 8 HOURS ?3; DAY 11
     Route: 060
  6. BUPRENORPHINE\NALOXONE [Suspect]
     Active Substance: BUPRENORPHINE\NALOXONE
     Dosage: BUPRENORPHINE/NALOXONE 8/2, 8/2, 8/2, 12/3 MG (Q6 HOUR); DAY 12
     Route: 060
  7. BUPRENORPHINE\NALOXONE [Suspect]
     Active Substance: BUPRENORPHINE\NALOXONE
     Dosage: BUPRENORPHINE/NALOXONE 8/2, 8/2, 8/2, 12/3 MG; DAY 13
     Route: 060
  8. BUPRENORPHINE\NALOXONE [Suspect]
     Active Substance: BUPRENORPHINE\NALOXONE
     Dosage: BUPRENORPHINE/NALOXONE 12/3, 8/2,?8/2, 12/3 MG; DAY 14
     Route: 060
  9. BUPRENORPHINE\NALOXONE [Suspect]
     Active Substance: BUPRENORPHINE\NALOXONE
     Dosage: BUPRENORPHINE/NALOXONE 12/3, 8/2, 8/2, 12/3 MG; DAY 15
     Route: 060
  10. BUPRENORPHINE\NALOXONE [Suspect]
     Active Substance: BUPRENORPHINE\NALOXONE
     Dosage: BUPRENORPHINE/NALOXONE 12/3, 8/2 MG; DAY 16 DISCHARGED?MID-DAY
     Route: 060
  11. OXYCODONE [Concomitant]
     Active Substance: OXYCODONE
     Dosage: OXYCODONE 160 ? 5; HOSPITAL DAY 2
  12. OXYCODONE [Concomitant]
     Active Substance: OXYCODONE
     Dosage: OXYCODONE 160 ? 6,?60 ? 1; HOSPITAL DAY 3
  13. OXYCODONE [Concomitant]
     Active Substance: OXYCODONE
     Dosage: OXYCODONE 160 MG?Q6 HOURS ? 6; HOSPITAL DAY 6
  14. OXYCODONE [Concomitant]
     Active Substance: OXYCODONE
     Dosage: OXYCODONE 160 MG?Q6 HOURS ? 6; HOSPITAL DAY 4
  15. OXYCODONE [Concomitant]
     Active Substance: OXYCODONE
     Dosage: OXYCODONE 160 MG?Q6 HOURS ? 6; HOSPITAL DAY 5
  16. OXYCODONE [Concomitant]
     Active Substance: OXYCODONE
     Dosage: OXYCODONE 160 MG?Q6 HOURS ? 5; HOSPITAL DAY 6
  17. OXYCODONE [Concomitant]
     Active Substance: OXYCODONE
     Dosage: OXYCODONE 160 MG?Q6 HOURS ?5; HOSPITAL DAY 7
  18. OXYCODONE [Concomitant]
     Active Substance: OXYCODONE
     Dosage: OXYCODONE 160 MG?Q6 HOURS ?6; HOSPITAL DAY 8
  19. OXYCODONE [Concomitant]
     Active Substance: OXYCODONE
     Dosage: OXYCODONE 160 MG?Q4 HOURS ?4; HOSPITAL DAY 9
  20. HYDROMORPHONE [Concomitant]
     Active Substance: HYDROMORPHONE
     Dosage: 4 MG ? 4; HOSPITAL DAY 1
     Route: 042
  21. HYDROMORPHONE [Concomitant]
     Active Substance: HYDROMORPHONE
     Dosage: 4 MG ? 8; HOSPITAL DAY 2
  22. HYDROMORPHONE [Concomitant]
     Active Substance: HYDROMORPHONE
     Dosage: 4 MG ? 6 ? 6; HOSPITAL DAY 3
  23. HYDROMORPHONE [Concomitant]
     Active Substance: HYDROMORPHONE
     Dosage: 4 MG Q6 HOURS PRN X 4; HOSPITAL DAY 4
  24. HYDROMORPHONE [Concomitant]
     Active Substance: HYDROMORPHONE
     Dosage: 4 MG Q6 HOURS PRN ??3; HOSPITAL DAY 5
  25. HYDROMORPHONE [Concomitant]
     Active Substance: HYDROMORPHONE
     Dosage: 4 MG Q6 HOURS PRN; HOSPITAL DAY 6
  26. HYDROMORPHONE [Concomitant]
     Active Substance: HYDROMORPHONE
     Dosage: 16 MG PO Q3 HOURS?PRN ? 1; HOSPITAL DAY 6
  27. HYDROMORPHONE [Concomitant]
     Active Substance: HYDROMORPHONE
     Dosage: 4 MG IV Q6 HOURS?PRN ? 4; HOSPITAL DAY 7
  28. HYDROMORPHONE [Concomitant]
     Active Substance: HYDROMORPHONE
     Dosage: 16 MG PO ?1; HOSPITAL DAY 7
  29. HYDROMORPHONE [Concomitant]
     Active Substance: HYDROMORPHONE
     Dosage: 4 MG IV Q6 HOURS?PRN ? 3; HOSPITAL DAY 8
  30. HYDROMORPHONE [Concomitant]
     Active Substance: HYDROMORPHONE
     Dosage: 4 MG IV Q6 HOURS?PRN ?1; HOSPITAL DAY 9
  31. BUPRENORPHINE [Concomitant]
     Active Substance: BUPRENORPHINE
     Dosage: 20 MCG/H BUPRENORPHINE TRANSDERMAL?PATCH; TAKEN FROM HOSPITAL DAY 5-8
     Route: 062

REACTIONS (3)
  - Drug withdrawal syndrome [Recovered/Resolved]
  - Off label use [Recovered/Resolved]
  - Incorrect route of product administration [Recovered/Resolved]
